FAERS Safety Report 8143820-2 (Version None)
Quarter: 2012Q1

REPORT INFORMATION
  Report Type: 
  Country: None (occurrence: None)
  Receive Date: 20120217
  Receipt Date: 20120216
  Transmission Date: 20120608
  Serious: Yes (Other)
  Sender: FDA-Public Use
  Company Number: CH-PFIZER INC-2012041541

PATIENT
  Age: 9 Year
  Sex: Female
  Weight: 20 kg

DRUGS (3)
  1. ALDACTONE [Suspect]
     Dosage: 25 MG, 1X/DAY
     Route: 048
  2. ESIDRIX [Suspect]
     Dosage: 25 MG, 1X/DAY
     Route: 048
     Dates: start: 20111222, end: 20111223
  3. ASPIRIN [Concomitant]
     Dosage: 60 MG, 1X/DAY
     Route: 048

REACTIONS (1)
  - CONVULSION [None]
